FAERS Safety Report 5460588-9 (Version None)
Quarter: 2007Q3

REPORT INFORMATION
  Report Type: 
  Country: None (occurrence: None)
  Receive Date: 20070919
  Receipt Date: 20070910
  Transmission Date: 20080115
  Serious: Yes (Other)
  Sender: FDA-Public Use
  Company Number: US-PFIZER INC-2007072278

PATIENT
  Sex: Female
  Weight: 90.7 kg

DRUGS (10)
  1. LYRICA [Suspect]
     Indication: MYELOPATHY
     Route: 048
  2. LYRICA [Suspect]
     Indication: PERIPHERAL NERVE INJURY
  3. NEURONTIN [Suspect]
     Indication: PERIPHERAL NERVE INJURY
     Route: 048
     Dates: start: 20020101, end: 20060101
  4. BACLOFEN [Concomitant]
  5. LIPITOR [Concomitant]
  6. BENICAR HCT [Concomitant]
  7. LOPRESSOR [Concomitant]
  8. NAPROXEN [Concomitant]
  9. VICODIN [Concomitant]
  10. PREVACID [Concomitant]

REACTIONS (6)
  - DRUG INEFFECTIVE [None]
  - MUSCLE TIGHTNESS [None]
  - OEDEMA PERIPHERAL [None]
  - RASH [None]
  - SKIN LESION [None]
  - WEIGHT INCREASED [None]
